FAERS Safety Report 6191739-9 (Version None)
Quarter: 2009Q2

REPORT INFORMATION
  Report Type: 
  Country: None (occurrence: None)
  Receive Date: 20090515
  Receipt Date: 20090504
  Transmission Date: 20091009
  Serious: Yes (Other)
  Sender: FDA-Public Use
  Company Number: CH-PFIZER INC-2009189486

PATIENT

DRUGS (1)
  1. CABASER [Suspect]
     Indication: RESTLESS LEGS SYNDROME
     Dosage: 2 MG, 2X/DAY

REACTIONS (2)
  - HEART VALVE INCOMPETENCE [None]
  - PULMONARY ARTERIAL PRESSURE INCREASED [None]
